FAERS Safety Report 12291040 (Version 2)
Quarter: 2016Q3

REPORT INFORMATION
  Report Type: Spontaneous
  Country: US (occurrence: US)
  Receive Date: 20160421
  Receipt Date: 20160929
  Transmission Date: 20161109
  Serious: Yes (Hospitalization, Other)
  Sender: FDA-Public Use
  Company Number: US-BRISTOL-MYERS SQUIBB COMPANY-BMS-2016-028080

PATIENT
  Age: 73 Year
  Sex: Male
  Weight: 105.2 kg

DRUGS (2)
  1. ELIQUIS [Suspect]
     Active Substance: APIXABAN
     Indication: DEEP VEIN THROMBOSIS
     Dosage: 10 MG, BID
     Route: 048
  2. ELIQUIS [Suspect]
     Active Substance: APIXABAN
     Indication: CEREBROVASCULAR ACCIDENT PROPHYLAXIS
     Dosage: 5 MG, BID
     Route: 048

REACTIONS (10)
  - Headache [Unknown]
  - Sleep disorder [Unknown]
  - Arthritis [Unknown]
  - Haemorrhage [Unknown]
  - Limb discomfort [Unknown]
  - Asthenia [Unknown]
  - Contusion [Unknown]
  - Feeling abnormal [Unknown]
  - Spinal operation [Unknown]
  - Pigmentation disorder [Unknown]

NARRATIVE: CASE EVENT DATE: 20160523
